FAERS Safety Report 5933342-9 (Version None)
Quarter: 2008Q4

REPORT INFORMATION
  Report Type: 
  Country: None (occurrence: None)
  Receive Date: 20081028
  Receipt Date: 20081016
  Transmission Date: 20090506
  Serious: Yes (Other)
  Sender: FDA-Public Use
  Company Number: JP-PFIZER INC-2008088272

PATIENT
  Sex: Male

DRUGS (9)
  1. REVATIO [Suspect]
     Indication: PULMONARY HYPERTENSION
     Route: 048
     Dates: start: 20081001
  2. BERAPROST [Concomitant]
  3. TRACLEER [Concomitant]
  4. WARFARIN SODIUM [Concomitant]
  5. NORVASC [Concomitant]
  6. MUCOSTA [Concomitant]
  7. DIART [Concomitant]
  8. RHYTHMY [Concomitant]
  9. DEPAS [Concomitant]

REACTIONS (2)
  - BLOOD PRESSURE INCREASED [None]
  - PULMONARY HYPERTENSION [None]
